FAERS Safety Report 9682188 (Version 2)
Quarter: 2013Q4

REPORT INFORMATION
  Report Type: Spontaneous
  Country: US (occurrence: US)
  Receive Date: 20131111
  Receipt Date: 20131128
  Transmission Date: 20140711
  Serious: No
  Sender: FDA-Public Use
  Company Number: US-009507513-1311USA003460

PATIENT
  Age: 18 Year
  Sex: Female
  Weight: 72.56 kg

DRUGS (1)
  1. NEXPLANON [Suspect]
     Indication: CONTRACEPTION
     Dosage: ONE ROD EVERY THREE YEARS
     Route: 059
     Dates: start: 20120906

REACTIONS (2)
  - Device breakage [Not Recovered/Not Resolved]
  - Amenorrhoea [Not Recovered/Not Resolved]
